FAERS Safety Report 9109544 (Version 2)
Quarter: 2013Q3

REPORT INFORMATION
  Report Type: Spontaneous
  Country: FR (occurrence: FR)
  Receive Date: 20130222
  Receipt Date: 20130920
  Transmission Date: 20140515
  Serious: Yes (Other)
  Sender: FDA-Public Use
  Company Number: PHHY2013FR015461

PATIENT
  Age: 81 Year
  Sex: Female

DRUGS (3)
  1. TASIGNA [Suspect]
     Indication: CHRONIC MYELOID LEUKAEMIA
     Dosage: 200 MG, BID
     Route: 048
     Dates: start: 2011, end: 2011
  2. TASIGNA [Suspect]
     Dosage: 200 MG, QD
     Route: 048
     Dates: start: 2011, end: 201208
  3. TASIGNA [Suspect]
     Dosage: 150 MG, QD
     Route: 048
     Dates: start: 201208

REACTIONS (3)
  - Ischaemic stroke [Unknown]
  - Hallucination [Unknown]
  - Hypercholesterolaemia [Recovered/Resolved]
